FAERS Safety Report 5521186-1 (Version None)
Quarter: 2007Q4

REPORT INFORMATION
  Report Type: 
  Country: None (occurrence: None)
  Receive Date: 20071119
  Receipt Date: 20071106
  Transmission Date: 20080405
  Serious: Yes (Hospitalization, Other)
  Sender: FDA-Public Use
  Company Number: BR-SHR-BR-2007-042321

PATIENT
  Age: 41 Year
  Sex: Female

DRUGS (1)
  1. MIRENA [Suspect]
     Indication: INTRA-UTERINE CONTRACEPTIVE DEVICE
     Dosage: 20 A?G/DAY, CONT
     Route: 015
     Dates: start: 20061204

REACTIONS (9)
  - AMENORRHOEA [None]
  - BREAST ENLARGEMENT [None]
  - CALCULUS URINARY [None]
  - DIZZINESS [None]
  - NAUSEA [None]
  - PREGNANCY WITH CONTRACEPTIVE DEVICE [None]
  - SOMNOLENCE [None]
  - VAGINAL CANDIDIASIS [None]
  - WEIGHT DECREASED [None]
